FAERS Safety Report 6855166-0 (Version None)
Quarter: 2010Q3

REPORT INFORMATION
  Report Type: 
  Country: None (occurrence: None)
  Receive Date: 20100717
  Receipt Date: 20081125
  Transmission Date: 20110219
  Serious: Yes (Life-Threatening, Other)
  Sender: FDA-Public Use
  Company Number: US-PFIZER INC-2007107711

PATIENT
  Age: 56 Year
  Sex: Female
  Weight: 81.633 kg

DRUGS (1)
  1. CHANTIX [Suspect]
     Dosage: 1MG TWICE A DAY PO
     Route: 048
     Dates: start: 20070703, end: 20070808

REACTIONS (7)
  - ABNORMAL DREAMS [None]
  - DEPRESSION [None]
  - DIZZINESS [None]
  - HEADACHE [None]
  - NAUSEA [None]
  - SOCIAL PROBLEM [None]
  - SUICIDAL IDEATION [None]
